FAERS Safety Report 20448543 (Version 2)
Quarter: 2022Q1

REPORT INFORMATION
  Report Type: Report from Study
  Country: BR (occurrence: BR)
  Receive Date: 20220209
  Receipt Date: 20220216
  Transmission Date: 20220423
  Serious: Yes (Hospitalization, Other)
  Sender: FDA-Public Use
  Company Number: BR-NOVARTISPH-NVSC2022BR026894

PATIENT
  Age: 62 Year
  Sex: Female

DRUGS (2)
  1. LETROZOLE [Suspect]
     Active Substance: LETROZOLE
     Indication: Product used for unknown indication
     Dosage: UNK
     Route: 065
  2. KISQALI [Suspect]
     Active Substance: RIBOCICLIB
     Indication: Product used for unknown indication
     Dosage: UNK
     Route: 065

REACTIONS (8)
  - Pleural effusion [Unknown]
  - Metastases to breast [Unknown]
  - Metastases to pleura [Unknown]
  - Spinal cord disorder [Unknown]
  - Metastases to lymph nodes [Unknown]
  - Neoplasm [Unknown]
  - Back pain [Recovered/Resolved]
  - Product expiration date issue [Unknown]

NARRATIVE: CASE EVENT DATE: 20211001
